FAERS Safety Report 7641865-X (Version None)
Quarter: 2011Q3

REPORT INFORMATION
  Report Type: 
  Country: None (occurrence: None)
  Receive Date: 20110728
  Receipt Date: 20110720
  Transmission Date: 20111222
  Serious: Yes (Hospitalization, Other)
  Sender: FDA-Public Use
  Company Number: HU-AMGEN-KDC416517

PATIENT
  Age: 77 Year
  Sex: Female

DRUGS (13)
  1. CAVINTON [Concomitant]
     Dosage: UNK UNK, UNK
     Route: 048
     Dates: start: 19800101
  2. ALGOPYRIN [Concomitant]
     Dosage: 20 MG, PRN
     Route: 048
     Dates: start: 20090330
  3. FUROSEMIDE [Concomitant]
     Dosage: UNK UNK, 2 TIMES/WK
     Route: 048
     Dates: start: 20080814
  4. VOLTAREN [Concomitant]
     Dosage: UNK UNK, PRN
     Route: 048
     Dates: start: 20090330
  5. DENOSUMAB [Suspect]
     Indication: OSTEOPOROSIS POSTMENOPAUSAL
     Dosage: 60 MG, Q6MO
     Route: 058
     Dates: start: 20080306, end: 20100909
  6. DUOPRIL [Concomitant]
     Dosage: UNK UNK, UNK
     Route: 048
     Dates: start: 20050101
  7. FRONTIN [Concomitant]
     Dosage: UNK UNK, UNK
     Route: 048
     Dates: start: 20090330
  8. SIMVACOL [Concomitant]
     Dosage: 20 MG, UNK
     Route: 048
     Dates: start: 20050420
  9. KALDYUM [Concomitant]
     Dosage: 600 MG, 2 TIMES/WK
     Route: 048
     Dates: start: 20080814
  10. ASPIRIN [Concomitant]
     Dosage: UNK UNK, UNK
     Route: 048
     Dates: start: 20050419
  11. CALCICHEW D3 [Concomitant]
     Dosage: UNK UNK, UNK
     Route: 048
     Dates: start: 20090312
  12. NITROMINT [Concomitant]
     Dosage: UNK UNK, UNK
     Route: 048
     Dates: start: 20090330
  13. CORDAFLEX [Concomitant]
     Dosage: UNK UNK, UNK
     Route: 048
     Dates: start: 20090330

REACTIONS (3)
  - OSTEOMYELITIS [None]
  - OSTEONECROSIS OF JAW [None]
  - PERIODONTAL DISEASE [None]
